FAERS Safety Report 15084193 (Version 2)
Quarter: 2018Q3

REPORT INFORMATION
  Report Type: Spontaneous
  Country: CA (occurrence: CA)
  Receive Date: 20180628
  Receipt Date: 20180703
  Transmission Date: 20181010
  Serious: Yes (Hospitalization, Other)
  Sender: FDA-Public Use
  Company Number: CA-SA-2018SA159925

PATIENT
  Age: 57 Year
  Sex: Male

DRUGS (4)
  1. ISONIAZID. [Suspect]
     Active Substance: ISONIAZID
     Indication: ACID FAST BACILLI INFECTION
     Dosage: UNK
     Dates: start: 19941223, end: 19950203
  2. RIFAMPICIN [Suspect]
     Active Substance: RIFAMPIN
     Indication: ACID FAST BACILLI INFECTION
     Dosage: UNK
     Dates: start: 19941223, end: 19950203
  3. PYRAZINAMIDE. [Suspect]
     Active Substance: PYRAZINAMIDE
     Indication: ACID FAST BACILLI INFECTION
     Dosage: UNK
     Dates: start: 19941223, end: 19950203
  4. ETHAMBUTOL [Suspect]
     Active Substance: ETHAMBUTOL HYDROCHLORIDE
     Indication: ACID FAST BACILLI INFECTION
     Dosage: UNK
     Dates: start: 19941223, end: 19950203

REACTIONS (22)
  - Lactic acidosis [Recovering/Resolving]
  - Rash maculo-papular [Recovered/Resolved]
  - Polydipsia [Recovering/Resolving]
  - Polyuria [Recovering/Resolving]
  - Blood pressure measurement [Recovering/Resolving]
  - Diabetic ketoacidosis [Recovering/Resolving]
  - Dyspnoea [Recovering/Resolving]
  - Steatorrhoea [Recovering/Resolving]
  - Abdominal pain [Recovered/Resolved]
  - Disorientation [Recovering/Resolving]
  - Hepatitis [Recovered/Resolved]
  - Pancreatic failure [Recovering/Resolving]
  - Metabolic acidosis [Recovering/Resolving]
  - Nausea [Recovered/Resolved]
  - Respiratory rate [Recovering/Resolving]
  - Heart rate [Recovering/Resolving]
  - Drug reaction with eosinophilia and systemic symptoms [Recovered/Resolved]
  - Pancreatitis acute [Recovering/Resolving]
  - Pallor [Recovered/Resolved]
  - Restlessness [Recovering/Resolving]
  - Rash [Recovered/Resolved]
  - Pyrexia [Recovered/Resolved]
